FAERS Safety Report 17768124 (Version 2)
Quarter: 2021Q2

REPORT INFORMATION
  Report Type: Spontaneous
  Country: US (occurrence: US)
  Receive Date: 20200511
  Receipt Date: 20210512
  Transmission Date: 20210716
  Serious: No
  Sender: FDA-Public Use
  Company Number: US-CADILA HEALTHCARE LIMITED-US-ZYDUS-036061

PATIENT
  Age: 82 Year
  Sex: Male

DRUGS (6)
  1. PRAVASTATIN. [Concomitant]
     Active Substance: PRAVASTATIN
     Indication: HYPERCHOLESTEROLAEMIA
     Dosage: 40 MILLIGRAM,(NO OF SEPERATEDOSAGE :1,INTERVAL :1 DAYS),FREQUENCY :ONCE DAILY IN THE EVENING
  2. ISOSORBIDE MONONITRATE. [Suspect]
     Active Substance: ISOSORBIDE MONONITRATE
     Indication: CARDIOVASCULAR DISORDER
     Dosage: 15 MILLIGRAM,(NO OF SEPERATEDOSAGE :1,INTERVAL :1 DAYS),FREQUENCY :ONCE DAILY IN THE MORNING
     Route: 048
     Dates: start: 20190108
  3. FISH OIL [Concomitant]
     Active Substance: FISH OIL
     Indication: PRODUCT USED FOR UNKNOWN INDICATION
  4. TAMSULOSIN [Concomitant]
     Active Substance: TAMSULOSIN
     Indication: PROSTATOMEGALY
     Dosage: .4 MILLIGRAM,(NO OF SEPERATEDOSAGE :1,INTERVAL :1 DAYS),FREQUENCY :ONCE DAILY
  5. BENAZEPRIL [Concomitant]
     Active Substance: BENAZEPRIL HYDROCHLORIDE
     Indication: HYPERTENSION
     Dosage: 5 MILLIGRAM,(NO OF SEPERATEDOSAGE :1,INTERVAL :1 DAYS),FREQUENCY :ONCE DAILY AT NIGHT
  6. CARVEDILOL. [Concomitant]
     Active Substance: CARVEDILOL
     Indication: HYPERTENSION
     Dosage: 3.125 MILLIGRAM,(NO OF SEPERATEDOSAGE :2,INTERVAL :1 DAYS)
     Route: 065

REACTIONS (2)
  - Hypotension [Recovered/Resolved]
  - Product use in unapproved indication [Unknown]

NARRATIVE: CASE EVENT DATE: 20190108
